FAERS Safety Report 24024824 (Version 3)
Quarter: 2024Q3

REPORT INFORMATION
  Report Type: Spontaneous
  Country: FR (occurrence: FR)
  Receive Date: 20240628
  Receipt Date: 20240710
  Transmission Date: 20241016
  Serious: No
  Sender: ROCHE
  Company Number: FR-ROCHE-3515344

PATIENT
  Age: 43 Year
  Sex: Female

DRUGS (2)
  1. PHESGO [Suspect]
     Active Substance: HYALURONIDASE-ZZXF\PERTUZUMAB\TRASTUZUMAB
     Indication: Breast cancer
     Dosage: STRENGTH - 1200/600 MG
     Route: 058
     Dates: start: 20220324, end: 20240304
  2. TAMOXIFEN [Suspect]
     Active Substance: TAMOXIFEN
     Indication: Product used for unknown indication
     Route: 065

REACTIONS (6)
  - Skin disorder [Unknown]
  - Swelling [Unknown]
  - Pruritus [Unknown]
  - Erythema [Unknown]
  - Injection site oedema [Unknown]
  - Injection site extravasation [Unknown]
